FAERS Safety Report 13302856 (Version 1)
Quarter: 2017Q1

REPORT INFORMATION
  Report Type: Spontaneous
  Country: US (occurrence: US)
  Receive Date: 20170307
  Receipt Date: 20170307
  Transmission Date: 20170428
  Serious: No
  Sender: FDA-Public Use
  Company Number: US-TEVA-740578ACC

PATIENT
  Age: 46 Year
  Sex: Female
  Weight: 70.37 kg

DRUGS (6)
  1. ARMOUR THYROID [Concomitant]
     Active Substance: THYROID, PORCINE
     Indication: HYPOTHYROIDISM
  2. MELATONIN [Concomitant]
     Active Substance: MELATONIN
  3. LITHIUM. [Concomitant]
     Active Substance: LITHIUM
  4. PARAGARD T 380A [Suspect]
     Active Substance: COPPER
     Indication: CONTRACEPTION
     Dates: start: 20170120, end: 20170202
  5. SEROQUEL [Concomitant]
     Active Substance: QUETIAPINE FUMARATE
     Indication: BIPOLAR DISORDER
  6. ILOPERIDONE [Concomitant]
     Active Substance: ILOPERIDONE
     Indication: BIPOLAR DISORDER

REACTIONS (2)
  - Device expulsion [Recovered/Resolved]
  - Vaginal haemorrhage [Recovered/Resolved]

NARRATIVE: CASE EVENT DATE: 20170202
